FAERS Safety Report 23874052 (Version 1)
Quarter: 2024Q2

REPORT INFORMATION
  Report Type: Spontaneous
  Country: GB (occurrence: GB)
  Receive Date: 20240520
  Receipt Date: 20240520
  Transmission Date: 20240716
  Serious: Yes (Other)
  Sender: FDA-Public Use
  Company Number: None

PATIENT
  Age: 62 Year
  Sex: Female
  Weight: 67 kg

DRUGS (5)
  1. DOXYCYCLINE [Suspect]
     Active Substance: DOXYCYCLINE
     Indication: Product used for unknown indication
     Dosage: 100 MILLIGRAM (TWO NOW THEN ONE DAILY)
     Route: 048
     Dates: start: 20240509
  2. AMOXICILLIN [Concomitant]
     Active Substance: AMOXICILLIN
     Dosage: 1 DOSAGE FORM, TID
     Route: 065
     Dates: start: 20240509
  3. AZELASTINE [Concomitant]
     Active Substance: AZELASTINE\AZELASTINE HYDROCHLORIDE
     Dosage: 1 DOSAGE FORM, BID (ONE PUFF TWICE DAILY)
     Route: 065
     Dates: start: 20221005
  4. Cetraben [Concomitant]
     Dosage: USE AS DIRECTED (EMOLLIENT CREAM)
     Route: 065
     Dates: start: 20210716
  5. VAGIFEM [Concomitant]
     Active Substance: ESTRADIOL
     Dosage: 1 DOSAGE FORM, QD (USE AS DIRECTED, USE ONCE DAILY FOR FIRST 2 WEE)
     Route: 065
     Dates: start: 20210716

REACTIONS (4)
  - Skin warm [Unknown]
  - Photosensitivity reaction [Unknown]
  - Rash erythematous [Unknown]
  - Pruritus [Unknown]

NARRATIVE: CASE EVENT DATE: 20240509
